FAERS Safety Report 8034079 (Version 3)
Quarter: 2012Q4

REPORT INFORMATION
  Report Type: Report from Study
  Country: JP (occurrence: JP)
  Receive Date: 20110714
  Receipt Date: 20121128
  Transmission Date: 20130627
  Serious: Yes (Hospitalization)
  Sender: FDA-Public Use
  Company Number: JP-BRISTOL-MYERS SQUIBB COMPANY-15574791

PATIENT
  Age: 60 Year
  Sex: Female
  Weight: 45 kg

DRUGS (10)
  1. ORENCIA FOR INJ 250 MG/VIAL [Suspect]
     Indication: RHEUMATOID ARTHRITIS
     Dosage: 13Dec10;75mg,07Jan11;500mg, No of administrations:2
     Route: 041
     Dates: start: 20101129, end: 20110121
  2. METHOTREXATE [Suspect]
     Dosage: for 10 years,Unk-25Jan11,25Apr11-ong
     Route: 048
  3. BONALON [Concomitant]
  4. TACROLIMUS [Concomitant]
  5. PREDNISOLONE [Concomitant]
     Indication: RHEUMATOID ARTHRITIS
     Route: 048
  6. VOLTAREN [Concomitant]
     Indication: RHEUMATOID ARTHRITIS
  7. BONALON [Concomitant]
  8. SELBEX [Concomitant]
     Indication: GASTRITIS PROPHYLAXIS
  9. FOLIAMIN [Concomitant]
  10. SENNOSIDE [Concomitant]

REACTIONS (1)
  - Pancytopenia [Recovered/Resolved]
